FAERS Safety Report 9730132 (Version 2)
Quarter: 2014Q3

REPORT INFORMATION
  Report Type: Report from Study
  Country: DE (occurrence: DE)
  Receive Date: 20131204
  Receipt Date: 20140703
  Transmission Date: 20150326
  Serious: Yes (Other)
  Sender: FDA-Public Use
  Company Number: DE-ABBVIE-13P-062-1174232-00

PATIENT
  Age: 60 Year
  Sex: Male
  Weight: 120 kg

DRUGS (1)
  1. HUMIRA [Suspect]
     Active Substance: ADALIMUMAB
     Indication: PSORIASIS
     Route: 058

REACTIONS (2)
  - Anaemia [Not Recovered/Not Resolved]
  - Diabetes mellitus [Not Recovered/Not Resolved]
